FAERS Safety Report 10515931 (Version 1)
Quarter: 2014Q4

REPORT INFORMATION
  Report Type: Spontaneous
  Country: CN (occurrence: None)
  Receive Date: 20141009
  Receipt Date: 20141009
  Transmission Date: 20150528
  Serious: Yes (Hospitalization)
  Sender: FDA-Public Use
  Company Number: B1022700A

PATIENT
  Age: 65 Year
  Weight: 74.84 kg

DRUGS (2)
  1. ANTIHYPERTENSIVE [Suspect]
     Active Substance: UNSPECIFIED INGREDIENT
     Indication: HYPERTENSION
  2. PAROXETINE HYDROCHLORIDE. [Suspect]
     Active Substance: PAROXETINE HYDROCHLORIDE
     Indication: DEPRESSION
     Dosage: 1 TABLET
     Route: 048
     Dates: start: 2010

REACTIONS (3)
  - Hypoaesthesia [None]
  - Fear of death [None]
  - Dyspnoea [None]

NARRATIVE: CASE EVENT DATE: 2012
